FAERS Safety Report 19877375 (Version 1)
Quarter: 2021Q3

REPORT INFORMATION
  Report Type: Spontaneous
  Country: US (occurrence: US)
  Receive Date: 20210923
  Receipt Date: 20210923
  Transmission Date: 20211014
  Serious: Yes (Death)
  Sender: FDA-Public Use
  Company Number: None

PATIENT
  Age: 69 Year
  Sex: Female

DRUGS (14)
  1. HYDRALZAINE [Concomitant]
  2. HYDROCO/APAP [Concomitant]
     Active Substance: ACETAMINOPHEN\HYDROCODONE
  3. BUDES/FORMOT [Concomitant]
  4. ISOSORB MONO ER [Concomitant]
     Active Substance: ISOSORBIDE MONONITRATE
  5. ALBUTEROL. [Concomitant]
     Active Substance: ALBUTEROL
  6. MELATONIN [Concomitant]
     Active Substance: MELATONIN
  7. PAROXETINE. [Concomitant]
     Active Substance: PAROXETINE
  8. VYNDAMAX [Suspect]
     Active Substance: TAFAMIDIS
     Indication: AMYLOIDOSIS
     Route: 048
     Dates: start: 20201223
  9. NYSTOP [Concomitant]
     Active Substance: NYSTATIN
  10. MAGNESIUM?OX [Concomitant]
  11. BUMETANIDE. [Concomitant]
     Active Substance: BUMETANIDE
  12. POT CHLORIDE ER [Concomitant]
  13. WARFARIN [Concomitant]
     Active Substance: WARFARIN
  14. LEVETIRACETA [Concomitant]
     Active Substance: LEVETIRACETAM

REACTIONS (1)
  - Death [None]
